FAERS Safety Report 26189192 (Version 1)
Quarter: 2025Q4

REPORT INFORMATION
  Report Type: Spontaneous
  Country: EU (occurrence: EU)
  Receive Date: 20251223
  Receipt Date: 20251223
  Transmission Date: 20260118
  Serious: Yes (Death)
  Sender: BAUSCH AND LOMB
  Company Number: EU-GIMEMA-ALL3024-2025-011

PATIENT
  Age: 52 Year
  Sex: Male
  Weight: 73 kg

DRUGS (8)
  1. DEXAMETHASONE [Interacting]
     Active Substance: DEXAMETHASONE
     Indication: Acute lymphocytic leukaemia
     Dates: start: 20251030, end: 20251106
  2. PEGASPARGASE [Interacting]
     Active Substance: PEGASPARGASE
     Indication: Acute lymphocytic leukaemia
     Dosage: 2775 MG
     Dates: start: 20251108, end: 20251108
  3. IDARUBICIN [Interacting]
     Active Substance: IDARUBICIN
     Indication: Acute lymphocytic leukaemia
     Dosage: 22.2 MILLIGRAM
     Dates: start: 20251030, end: 20251031
  4. VINCRISTINE [Interacting]
     Active Substance: VINCRISTINE
     Indication: Acute lymphocytic leukaemia
     Dosage: 2 MILLIGRAM
     Dates: start: 20251030, end: 20251106
  5. METHOTREXATE [Interacting]
     Active Substance: METHOTREXATE
     Indication: Prophylaxis
     Route: 029
     Dates: start: 20251103, end: 20251107
  6. CYTARABINE [Interacting]
     Active Substance: CYTARABINE
     Indication: Prophylaxis
     Route: 029
     Dates: start: 20251103, end: 20251107
  7. DEXAMETHASONE [Interacting]
     Active Substance: DEXAMETHASONE
     Indication: Prophylaxis
     Route: 029
     Dates: start: 20251103, end: 20251107
  8. DARATUMUMAB [Suspect]
     Active Substance: DARATUMUMAB
     Indication: Acute lymphocytic leukaemia
     Route: 058
     Dates: start: 20251031, end: 20251106

REACTIONS (1)
  - Acute respiratory failure [Fatal]

NARRATIVE: CASE EVENT DATE: 20251119
